FAERS Safety Report 4608434-7 (Version None)
Quarter: 2005Q1

REPORT INFORMATION
  Report Type: 
  Country: None (occurrence: None)
  Receive Date: 20050310
  Receipt Date: 20050225
  Transmission Date: 20050727
  Serious: Yes (Other)
  Sender: FDA-Public Use
  Company Number: SGB1-2005-00090

PATIENT
  Age: 73 Year

DRUGS (1)
  1. XAGRID 0.5MG (ANAGRELIDE HYDROCHLORIDE) CAPSULE [Suspect]
     Indication: ESSENTIAL THROMBOCYTHAEMIA

REACTIONS (1)
  - ARRHYTHMIA SUPRAVENTRICULAR [None]
